FAERS Safety Report 7190016-7 (Version None)
Quarter: 2010Q4

REPORT INFORMATION
  Report Type: 
  Country: None (occurrence: None)
  Receive Date: 20101223
  Receipt Date: 20101206
  Transmission Date: 20110411
  Serious: Yes (Other)
  Sender: FDA-Public Use
  Company Number: US-BAYER-2010-003723

PATIENT

DRUGS (1)
  1. MAGNEVIST [Suspect]
     Dosage: UNK UNK, ONCE
     Dates: start: 20101203, end: 20101203

REACTIONS (3)
  - ORAL PRURITUS [None]
  - SWOLLEN TONGUE [None]
  - THROAT IRRITATION [None]
